FAERS Safety Report 18627892 (Version 1)
Quarter: 2020Q4

REPORT INFORMATION
  Report Type: Spontaneous
  Country: US (occurrence: US)
  Receive Date: 20201217
  Receipt Date: 20201217
  Transmission Date: 20210114
  Serious: No
  Sender: FDA-Public Use
  Company Number: US-DRREDDYS-USA/USA/20/0129785

PATIENT
  Age: 36 Year
  Sex: Female

DRUGS (2)
  1. ZENATANE [Suspect]
     Active Substance: ISOTRETINOIN
     Indication: PRODUCT USED FOR UNKNOWN INDICATION
     Dosage: RMA ISSUE DATE: 10/27/2020 9:21:35 AM, 9/25/2020 5:56:30 PM, 8/26/2020 4:10:44 PM, 7/27/2020 9:57:01
     Route: 048
  2. ZENATANE [Suspect]
     Active Substance: ISOTRETINOIN
     Dosage: RMA ISSUE DATE: 8/26/2020 4:10:27 PM, 9/25/2020 5:55:26 PM
     Route: 048

REACTIONS (1)
  - Adverse drug reaction [Unknown]
